FAERS Safety Report 6490563-7 (Version None)
Quarter: 2009Q4

REPORT INFORMATION
  Report Type: 
  Country: None (occurrence: None)
  Receive Date: 20091124
  Receipt Date: 20060813
  Transmission Date: 20100525
  Serious: Yes (Other)
  Sender: FDA-Public Use
  Company Number: 288658

PATIENT
  Age: 67 Year
  Sex: Female
  Weight: 113.3993 kg

DRUGS (3)
  1. HERCEPTIN [Suspect]
     Indication: CHEMOTHERAPY
  2. TAXOTERE [Suspect]
     Indication: CHEMOTHERAPY
  3. BENADRYL [Suspect]
     Indication: DRUG USE FOR UNKNOWN INDICATION
     Dosage: INTRAVENOUS
     Route: 042

REACTIONS (6)
  - CONDITION AGGRAVATED [None]
  - DYSPHAGIA [None]
  - HYPERSENSITIVITY [None]
  - INSOMNIA [None]
  - NOCTURIA [None]
  - PHARYNGEAL OEDEMA [None]
